FAERS Safety Report 10055005 (Version 3)
Quarter: 2014Q2

REPORT INFORMATION
  Report Type: Spontaneous
  Country: DE (occurrence: DE)
  Receive Date: 20140402
  Receipt Date: 20140421
  Transmission Date: 20141212
  Serious: Yes (Hospitalization)
  Sender: FDA-Public Use
  Company Number: PHHY2014DE038838

PATIENT
  Age: 65 Year
  Sex: Male
  Weight: 76 kg

DRUGS (8)
  1. EXJADE [Suspect]
     Indication: THALASSAEMIA
     Dosage: 1000 MG, DAILY
     Route: 048
     Dates: end: 20140401
  2. PANTOPRAZOL HEXAL [Concomitant]
     Indication: PROPHYLAXIS
     Dosage: 40 MG, QD
     Route: 048
  3. METOHEXAL SUCC [Concomitant]
     Indication: RENAL FAILURE ACUTE
     Dosage: 95 MG, QD
     Route: 048
  4. ACETYLSALICYLIC ACID [Concomitant]
     Dosage: 100 UKN, QD
     Route: 048
     Dates: start: 2009
  5. SIMVASTATIN [Concomitant]
     Indication: BLOOD CHOLESTEROL ABNORMAL
     Dosage: 40 MG, QD
     Route: 048
     Dates: start: 2009
  6. EUTHYROX [Concomitant]
     Indication: HYPOTHYROIDISM
     Dosage: 75 UG, QD
     Route: 048
     Dates: start: 2002
  7. RAMIPRIL [Concomitant]
     Indication: HYPERTENSION
     Dosage: 5 UKN, QD
     Route: 048
     Dates: start: 2008
  8. HCT [Concomitant]
     Indication: HYPERTENSION
     Dosage: 12.5
     Route: 048
     Dates: start: 2009

REACTIONS (6)
  - Renal failure acute [Not Recovered/Not Resolved]
  - Glomerular filtration rate decreased [Unknown]
  - Blood creatinine increased [Unknown]
  - Blood urea increased [Unknown]
  - Urine output decreased [Unknown]
  - Injury [Recovered/Resolved]
